FAERS Safety Report 4546607-2 (Version None)
Quarter: 2005Q1

REPORT INFORMATION
  Report Type: 
  Country: None (occurrence: None)
  Receive Date: 20050103
  Receipt Date: 20041217
  Transmission Date: 20050727
  Serious: Yes (Death)
  Sender: FDA-Public Use
  Company Number: 2004-00207

PATIENT
  Age: 80 Year
  Sex: Male
  Weight: 70.8 kg

DRUGS (6)
  1. VELCADE [Suspect]
     Indication: MANTLE CELL LYMPHOMA
     Dosage: 2.30 MG, IV BOLUS
     Route: 040
     Dates: start: 20040405, end: 20040422
  2. CELEBREX (CELELCOXIB) [Concomitant]
  3. OXYCONTIN [Concomitant]
  4. NEXIUM [Concomitant]
  5. ACYCLOVIR [Concomitant]
  6. BACTRIM [Concomitant]

REACTIONS (16)
  - ARTHRALGIA [None]
  - ASTHENIA [None]
  - BACK PAIN [None]
  - BLOOD CREATININE INCREASED [None]
  - BLOOD UREA INCREASED [None]
  - CONDITION AGGRAVATED [None]
  - HAEMATOCRIT DECREASED [None]
  - HAEMOGLOBIN DECREASED [None]
  - MALIGNANT NEOPLASM PROGRESSION [None]
  - MANTLE CELL LYMPHOMA [None]
  - MYOPATHY STEROID [None]
  - OFF LABEL USE [None]
  - PLATELET COUNT DECREASED [None]
  - PLEURAL EFFUSION [None]
  - POLLAKIURIA [None]
  - RENAL FAILURE [None]
